FAERS Safety Report 5530566-X (Version None)
Quarter: 2007Q4

REPORT INFORMATION
  Report Type: 
  Country: None (occurrence: None)
  Receive Date: 20071119
  Receipt Date: 20070813
  Transmission Date: 20080405
  Serious: No
  Sender: FDA-Public Use
  Company Number: TPA2007A01708

PATIENT
  Sex: Female

DRUGS (1)
  1. ROZEREM [Suspect]
     Dosage: ONCE

REACTIONS (2)
  - ASTHENIA [None]
  - PALPITATIONS [None]
